FAERS Safety Report 17034800 (Version 5)
Quarter: 2020Q3

REPORT INFORMATION
  Report Type: Other
  Country: JP (occurrence: JP)
  Receive Date: 20191115
  Receipt Date: 20200922
  Transmission Date: 20201102
  Serious: Yes (Other)
  Sender: FDA-Public Use
  Company Number: JP-ROCHE-2471187

PATIENT
  Sex: Female
  Weight: 37 kg

DRUGS (11)
  1. THYRADIN?S [Concomitant]
     Active Substance: LEVOTHYROXINE
     Indication: THYROIDITIS CHRONIC
     Route: 045
     Dates: start: 20180301
  2. ATOVAQUONE. [Concomitant]
     Active Substance: ATOVAQUONE
     Indication: INFECTION PROPHYLAXIS
     Route: 045
     Dates: start: 20180919, end: 20180922
  3. BONVIVA [Suspect]
     Active Substance: IBANDRONATE SODIUM
     Indication: OSTEOPOROSIS
     Route: 042
     Dates: start: 20180829, end: 20180926
  4. NEXIUM [Concomitant]
     Active Substance: ESOMEPRAZOLE MAGNESIUM
     Indication: GASTRIC ULCER
     Route: 045
     Dates: start: 20180829, end: 20181010
  5. EPADEL [Concomitant]
     Active Substance: ICOSAPENT
     Indication: DYSLIPIDAEMIA
     Route: 045
     Dates: start: 20180918, end: 20180922
  6. PREDNISOLONE. [Concomitant]
     Active Substance: PREDNISOLONE
     Indication: SYSTEMIC LUPUS ERYTHEMATOSUS
     Route: 045
     Dates: start: 20180630, end: 20181014
  7. LANSOPRAZOLE OD [Concomitant]
     Active Substance: LANSOPRAZOLE
     Indication: GASTRIC ULCER
     Route: 045
     Dates: start: 20180801, end: 20180829
  8. LIPIDIL [Concomitant]
     Active Substance: FENOFIBRATE
     Indication: DYSLIPIDAEMIA
     Route: 045
     Dates: start: 20180830, end: 20180911
  9. BAKTAR [Concomitant]
     Active Substance: SULFAMETHOXAZOLE\TRIMETHOPRIM
     Route: 045
     Dates: start: 20180910, end: 20180919
  10. PICOSULFATE NA [Concomitant]
     Active Substance: SODIUM PICOSULFATE
     Indication: CONSTIPATION
     Route: 045
     Dates: start: 20180831
  11. BAKTAR [Concomitant]
     Active Substance: SULFAMETHOXAZOLE\TRIMETHOPRIM
     Indication: INFECTION
     Route: 045
     Dates: end: 20180908

REACTIONS (4)
  - Hepatic function abnormal [Recovered/Resolved]
  - Ileus paralytic [Unknown]
  - Eczema [Unknown]
  - Colitis [Unknown]
